FAERS Safety Report 10758040 (Version 4)
Quarter: 2015Q2

REPORT INFORMATION
  Report Type: Other
  Country: FR (occurrence: FR)
  Receive Date: 20150203
  Receipt Date: 20150430
  Transmission Date: 20150821
  Serious: Yes (Life-Threatening, Other)
  Sender: FDA-Public Use
  Company Number: FR-ASTELLAS-2015US002834

PATIENT
  Age: 40 Year
  Sex: Male

DRUGS (5)
  1. ELTEANS [Concomitant]
     Indication: ECZEMA ASTEATOTIC
     Dosage: 2 CAPSULES DAILY
     Route: 065
     Dates: start: 20121221
  2. PROTOPIC [Suspect]
     Active Substance: TACROLIMUS
     Indication: DERMATITIS ATOPIC
     Dosage: 2 APPLICATIONS DAILY ON THE FACE
     Route: 061
     Dates: start: 200810
  3. CERATFRAIS [Concomitant]
     Indication: PRODUCT USED FOR UNKNOWN INDICATION
     Dosage: UNK UNK, UNKNOWN FREQ.
     Route: 065
     Dates: start: 20080101
  4. PROTOPIC [Suspect]
     Active Substance: TACROLIMUS
     Indication: DERMATITIS ATOPIC
     Dosage: 2 OR 3 TIMES A WEEK
     Route: 061
     Dates: end: 201203
  5. DEREXYL [Concomitant]
     Indication: PRODUCT USED FOR UNKNOWN INDICATION
     Dosage: UNK, UNKNOWN FREQ.
     Route: 065
     Dates: start: 20080101

REACTIONS (3)
  - Mycosis fungoides [Not Recovered/Not Resolved]
  - Drug effect decreased [Unknown]
  - Inappropriate schedule of drug administration [Unknown]

NARRATIVE: CASE EVENT DATE: 2010
